FAERS Safety Report 8104358 (Version 4)
Quarter: 2013Q3

REPORT INFORMATION
  Report Type: Spontaneous
  Country: US (occurrence: US)
  Receive Date: 20110824
  Receipt Date: 20130910
  Transmission Date: 20140515
  Serious: Yes (Death, Hospitalization)
  Sender: FDA-Public Use
  Company Number: US-GLAXOSMITHKLINE-A0915578A

PATIENT
  Age: 73 Year
  Sex: Female
  Weight: 86.4 kg

DRUGS (2)
  1. AVANDIA [Suspect]
     Indication: DIABETES MELLITUS
     Route: 048
     Dates: start: 2003, end: 20080404
  2. AVANDAMET [Suspect]
     Indication: DIABETES MELLITUS
     Route: 048
     Dates: start: 2003, end: 20080404

REACTIONS (6)
  - Coronary artery disease [Fatal]
  - Aortic valve disease [Fatal]
  - Myocardial infarction [Unknown]
  - Ischaemic cardiomyopathy [Unknown]
  - Angina unstable [Unknown]
  - Cardiac failure congestive [Unknown]
